FAERS Safety Report 8425506-X (Version None)
Quarter: 2012Q2

REPORT INFORMATION
  Report Type: 
  Country: None (occurrence: None)
  Receive Date: 20120611
  Receipt Date: 20120528
  Transmission Date: 20120825
  Serious: Yes (Hospitalization)
  Sender: FDA-Public Use
  Company Number: IT-CELGENEUS-083-21880-12040710

PATIENT
  Sex: Female

DRUGS (6)
  1. ASPIRIN [Concomitant]
     Route: 048
  2. OMEPRAZOLE [Concomitant]
     Route: 048
  3. FOLIDAR [Concomitant]
     Route: 048
  4. REVLIMID [Suspect]
     Indication: MULTIPLE MYELOMA
     Dosage: 25 MILLIGRAM
     Route: 048
     Dates: start: 20120316, end: 20120327
  5. REVLIMID [Suspect]
     Route: 048
     Dates: start: 20120201
  6. DEXAMETHASONE SODIUM PHOSPHATE [Concomitant]
     Route: 048

REACTIONS (1)
  - DEPRESSION [None]
